FAERS Safety Report 21268725 (Version 2)
Quarter: 2022Q3

REPORT INFORMATION
  Report Type: Spontaneous
  Country: US (occurrence: US)
  Receive Date: 20220830
  Receipt Date: 20220921
  Transmission Date: 20221027
  Serious: No
  Sender: FDA-Public Use
  Company Number: US-ORGANON-O2208USA001472

PATIENT
  Sex: Female
  Weight: 59.87 kg

DRUGS (1)
  1. NEXPLANON [Suspect]
     Active Substance: ETONOGESTREL
     Dosage: 1 IMPLANT IN LEFT UPPER ARM,4-5 YEARS

REACTIONS (2)
  - Device issue [Recovered/Resolved]
  - Incorrect product administration duration [Unknown]
